FAERS Safety Report 10682106 (Version 1)
Quarter: 2014Q4

REPORT INFORMATION
  Report Type: Spontaneous
  Country: FR (occurrence: FR)
  Receive Date: 20141230
  Receipt Date: 20141230
  Transmission Date: 20150529
  Serious: Yes (Other)
  Sender: FDA-Public Use
  Company Number: FR-TEVA-531419ISR

PATIENT

DRUGS (2)
  1. FLUOROURACIL. [Suspect]
     Active Substance: FLUOROURACIL
     Dosage: 1 CYCLE
     Route: 065
  2. CISPLATIN. [Concomitant]
     Active Substance: CISPLATIN
     Dosage: 1 CYCLE
     Route: 065

REACTIONS (4)
  - Thrombocytopenia [Unknown]
  - Pancytopenia [Unknown]
  - Anaemia [Unknown]
  - Neutropenia [Unknown]
